FAERS Safety Report 8523117-9 (Version None)
Quarter: 2012Q3

REPORT INFORMATION
  Report Type: 
  Country: None (occurrence: None)
  Receive Date: 20120720
  Receipt Date: 20120716
  Transmission Date: 20120928
  Serious: No
  Sender: FDA-Public Use
  Company Number: US-PFIZER INC-2012127100

PATIENT
  Sex: Male
  Weight: 79.365 kg

DRUGS (5)
  1. SUTENT [Suspect]
     Indication: METASTATIC RENAL CELL CARCINOMA
     Dosage: 50 MG, DAILY 4 WKS ON, 2 WKS OFF
     Route: 048
     Dates: start: 20120517
  2. LYRICA [Concomitant]
     Indication: NEUROPATHY PERIPHERAL
     Dosage: 600 MG, 1X/DAY EVERY EVENING
  3. GLIPIZIDE [Concomitant]
  4. AMLODIPINE [Concomitant]
     Dosage: 2.5 MG, QAM
     Dates: start: 20120501
  5. LANTUS [Concomitant]
     Indication: TYPE 2 DIABETES MELLITUS
     Dosage: 20 IU, DAILY

REACTIONS (3)
  - PALMAR-PLANTAR ERYTHRODYSAESTHESIA SYNDROME [None]
  - GLOSSODYNIA [None]
  - JOINT STIFFNESS [None]
